FAERS Safety Report 8625000-7 (Version None)
Quarter: 2012Q3

REPORT INFORMATION
  Report Type: 
  Country: None (occurrence: None)
  Receive Date: 20120827
  Receipt Date: 20120815
  Transmission Date: 20120928
  Serious: Yes (Hospitalization, Disabling, Other)
  Sender: FDA-Public Use
  Company Number: US-009507513-1207USA005660

PATIENT

DRUGS (6)
  1. ZETIA [Concomitant]
     Indication: HYPERLIPIDAEMIA
  2. NORVASC [Concomitant]
     Indication: HYPERTENSION
  3. FOSAMAX [Suspect]
     Dosage: 10 MG, QD
     Route: 048
     Dates: start: 19990312, end: 20010510
  4. FOSAMAX [Suspect]
     Dosage: 70 MG, QW
     Route: 048
     Dates: start: 20010525, end: 20070118
  5. FOSAMAX [Suspect]
     Indication: OSTEOPOROSIS
     Dosage: UNK
     Route: 048
     Dates: end: 20060101
  6. LIPITOR [Concomitant]
     Indication: HYPERLIPIDAEMIA

REACTIONS (18)
  - ANAEMIA POSTOPERATIVE [None]
  - OPEN REDUCTION OF FRACTURE [None]
  - ATRIOVENTRICULAR BLOCK FIRST DEGREE [None]
  - SCIATICA [None]
  - FAT NECROSIS [None]
  - NERVE ROOT COMPRESSION [None]
  - ELECTROCARDIOGRAM CHANGE [None]
  - GASTROOESOPHAGEAL REFLUX DISEASE [None]
  - FEMUR FRACTURE [None]
  - INCISION SITE BLISTER [None]
  - OSTEOARTHRITIS [None]
  - ANKLE FRACTURE [None]
  - INTERVERTEBRAL DISC PROTRUSION [None]
  - SPINAL DECOMPRESSION [None]
  - LUMBAR SPINAL STENOSIS [None]
  - GASTRITIS [None]
  - LOW TURNOVER OSTEOPATHY [None]
  - DEPRESSION [None]
